FAERS Safety Report 6616751-4 (Version None)
Quarter: 2010Q1

REPORT INFORMATION
  Report Type: 
  Country: None (occurrence: None)
  Receive Date: 20100305
  Receipt Date: 20100223
  Transmission Date: 20100710
  Serious: Yes (Other)
  Sender: FDA-Public Use
  Company Number: FR-PFIZER INC-2010026004

PATIENT
  Age: 48 Year
  Sex: Female
  Weight: 100 kg

DRUGS (5)
  1. LYRICA [Suspect]
     Indication: ARTHRALGIA
     Dosage: 75 MG, 1X/DAY
  2. LYRICA [Suspect]
     Dosage: 100 MG, 1X/DAY
  3. ESCITALOPRAM [Concomitant]
     Dosage: 20 MG, 1X/DAY
     Dates: start: 20090828
  4. LEXOMIL [Concomitant]
     Dosage: 3 MG/DAY
  5. AROMASIN [Concomitant]
     Indication: BREAST CANCER
     Dosage: UNK
     Dates: start: 20090201, end: 20091127

REACTIONS (4)
  - ARTHRALGIA [None]
  - HOT FLUSH [None]
  - HYPERHIDROSIS [None]
  - SOMNOLENCE [None]
